FAERS Safety Report 7291326 (Version 3)
Quarter: 2020Q3

REPORT INFORMATION
  Report Type: Spontaneous
  Country: NP (occurrence: NP)
  Receive Date: 20100223
  Receipt Date: 20200813
  Transmission Date: 20201103
  Serious: Yes (Life-Threatening, Other)
  Sender: FDA-Public Use
  Company Number: NP-PFIZER INC-2010019456

PATIENT
  Age: 27 Year
  Sex: Female
  Weight: 56 kg

DRUGS (8)
  1. LABETALOL [Suspect]
     Active Substance: LABETALOL\LABETALOL HYDROCHLORIDE
     Dosage: 10 MG, UNK
  2. HALOTHANE. [Suspect]
     Active Substance: HALOTHANE
     Dosage: 1.5%
     Route: 042
  3. PROPOFOL. [Suspect]
     Active Substance: PROPOFOL
     Indication: ANAESTHESIA
     Dosage: 170 MG, UNK
     Route: 042
  4. CEFTRIAXONE. [Suspect]
     Active Substance: CEFTRIAXONE
     Dosage: 1 G, UNK
     Route: 042
  5. VECURONIUM [Suspect]
     Active Substance: VECURONIUM BROMIDE
     Indication: ANAESTHESIA
     Dosage: 5.5 MG, UNK
     Route: 042
  6. FENTANYL CITRATE. [Suspect]
     Active Substance: FENTANYL CITRATE
     Indication: ANAESTHESIA
     Dosage: 100 UG, UNK
  7. HALOTHANE. [Suspect]
     Active Substance: HALOTHANE
     Dosage: 2%
  8. GABAPENTIN. [Suspect]
     Active Substance: GABAPENTIN
     Indication: PREMEDICATION
     Dosage: 600 MG, UNK
     Route: 048

REACTIONS (1)
  - Cardiac arrest [Recovered/Resolved]
